FAERS Safety Report 10593486 (Version 2)
Quarter: 2014Q4

REPORT INFORMATION
  Report Type: Spontaneous
  Country: GB (occurrence: GB)
  Receive Date: 20141119
  Receipt Date: 20141205
  Transmission Date: 20150529
  Serious: Yes (Hospitalization)
  Sender: FDA-Public Use
  Company Number: GB-ABBVIE-14P-167-1309109-00

PATIENT
  Age: 5 Month
  Sex: Male
  Weight: 4.95 kg

DRUGS (5)
  1. ULTANE [Suspect]
     Active Substance: SEVOFLURANE
     Indication: ANAESTHESIA
     Route: 055
     Dates: start: 20141028, end: 20141028
  2. ATRACURIUM [Suspect]
     Active Substance: ATRACURIUM
     Indication: SURGERY
     Route: 042
     Dates: start: 20141028, end: 20141028
  3. OMEPRAZOLE. [Concomitant]
     Active Substance: OMEPRAZOLE
     Indication: PRODUCT USED FOR UNKNOWN INDICATION
  4. SPIRONOLACTONE. [Concomitant]
     Active Substance: SPIRONOLACTONE
     Indication: PRODUCT USED FOR UNKNOWN INDICATION
  5. FUROSEMIDE. [Concomitant]
     Active Substance: FUROSEMIDE
     Indication: PRODUCT USED FOR UNKNOWN INDICATION

REACTIONS (3)
  - Blood creatine phosphokinase increased [Recovering/Resolving]
  - Muscle rigidity [Recovered/Resolved with Sequelae]
  - Hypertonia [Recovered/Resolved with Sequelae]

NARRATIVE: CASE EVENT DATE: 20141028
